FAERS Safety Report 11882580 (Version 1)
Quarter: 2015Q4

REPORT INFORMATION
  Report Type: Spontaneous
  Country: US (occurrence: None)
  Receive Date: 20151230
  Receipt Date: 20151230
  Transmission Date: 20160305
  Serious: Yes (Other)
  Sender: FDA-Public Use
  Company Number: None

PATIENT
  Age: 72 Year
  Sex: Male
  Weight: 115.67 kg

DRUGS (4)
  1. GABAPENTIN 600 MG GLENMARK PHARM [Suspect]
     Active Substance: GABAPENTIN
     Indication: CEREBROVASCULAR ACCIDENT
     Route: 048
     Dates: start: 20150812, end: 20151117
  2. METAFORMN [Concomitant]
  3. MULTI VITAMINS [Concomitant]
  4. INSULIN [Concomitant]
     Active Substance: INSULIN NOS

REACTIONS (1)
  - Blood glucose increased [None]
